FAERS Safety Report 6651894-0 (Version None)
Quarter: 2010Q1

REPORT INFORMATION
  Report Type: 
  Country: None (occurrence: None)
  Receive Date: 20100325
  Receipt Date: 20100316
  Transmission Date: 20100710
  Serious: Yes (Other)
  Sender: FDA-Public Use
  Company Number: AR-JNJFOC-20100305025

PATIENT
  Age: 18 Month
  Sex: Male

DRUGS (1)
  1. IBUPIRAC 2% [Suspect]
     Indication: DRUG USE FOR UNKNOWN INDICATION

REACTIONS (3)
  - CONVULSION [None]
  - PRODUCT CONTAMINATION MICROBIAL [None]
  - PYREXIA [None]
